FAERS Safety Report 9857027 (Version 2)
Quarter: 2014Q1

REPORT INFORMATION
  Report Type: Spontaneous
  Country: FR (occurrence: None)
  Receive Date: 20140128
  Receipt Date: 20140219
  Transmission Date: 20141002
  Serious: Yes (Hospitalization)
  Sender: FDA-Public Use
  Company Number: DSM-2014-00060

PATIENT
  Age: 54 Year
  Sex: Female

DRUGS (4)
  1. ALTEIS [Suspect]
     Indication: HYPERTENSION
     Dosage: 18 MONTH AGO-
     Route: 048
  2. LYRICA [Suspect]
     Indication: NEURALGIA
     Route: 048
  3. CLOPIDOGREL(CLOPIDOGREL)(***)(CLOPIDOGREL) [Concomitant]
  4. TAHOR(ATORVASTATIN CALCIUM)(ATORVASTATIN CALCIUM) [Concomitant]

REACTIONS (4)
  - Malaise [None]
  - Orthostatic hypotension [None]
  - Acute prerenal failure [None]
  - Diarrhoea [None]
